FAERS Safety Report 9426435 (Version 1)
Quarter: 2013Q3

REPORT INFORMATION
  Report Type: Spontaneous
  Country: US (occurrence: US)
  Receive Date: 20130730
  Receipt Date: 20130730
  Transmission Date: 20140515
  Serious: No
  Sender: FDA-Public Use
  Company Number: US-BAYER-2013-091596

PATIENT
  Age: 54 Year
  Sex: Male
  Weight: 152.83 kg

DRUGS (5)
  1. ALEVE CAPLET [Suspect]
     Dosage: 1 DF, EVERY 6 HOURS
     Route: 048
     Dates: start: 2011
  2. SIMVASTATIN [Concomitant]
  3. BRIMONIDINE [Concomitant]
  4. POLYMYXIN [Concomitant]
  5. PREDNISOLONE [Concomitant]

REACTIONS (1)
  - Inappropriate schedule of drug administration [None]
